FAERS Safety Report 4930885-1 (Version None)
Quarter: 2006Q1

REPORT INFORMATION
  Report Type: 
  Country: None (occurrence: None)
  Receive Date: 20060127
  Receipt Date: 20051121
  Transmission Date: 20060701
  Serious: Yes (Other)
  Sender: FDA-Public Use
  Company Number: 2005159417

PATIENT
  Age: 43 Year
  Sex: Male
  Weight: 78.0187 kg

DRUGS (4)
  1. LYRICA [Suspect]
     Indication: PARTIAL SEIZURES
     Dosage: 150 MG (75 MG, 2 IN 1 D), ORAL
     Route: 048
     Dates: start: 20050101
  2. TEGRETOL [Suspect]
     Indication: ILL-DEFINED DISORDER
     Dates: end: 20050101
  3. ALL OTHER THERAPEUTIC PRODUCTS (ALL OTHER THERAPEUTIC PRODUCTS) [Concomitant]
  4. LAMICTAL [Concomitant]

REACTIONS (2)
  - DRY MOUTH [None]
  - WEIGHT INCREASED [None]
